FAERS Safety Report 13235122 (Version 1)
Quarter: 2017Q1

REPORT INFORMATION
  Report Type: Spontaneous
  Country: SE (occurrence: SE)
  Receive Date: 20170215
  Receipt Date: 20170215
  Transmission Date: 20170428
  Serious: Yes (Hospitalization)
  Sender: FDA-Public Use
  Company Number: SE-JNJFOC-20170212085

PATIENT
  Age: 74 Year
  Sex: Male

DRUGS (8)
  1. BEHEPAN [Concomitant]
     Active Substance: HYDROXOCOBALAMIN
     Route: 065
  2. OXYNORM [Concomitant]
     Active Substance: OXYCODONE HYDROCHLORIDE
     Route: 065
  3. ALVEDON [Concomitant]
     Active Substance: ACETAMINOPHEN
     Route: 065
  4. FOLACIN [Concomitant]
     Active Substance: FOLIC ACID
     Route: 065
  5. LEVETIRACETAM. [Concomitant]
     Active Substance: LEVETIRACETAM
     Route: 065
  6. XARELTO [Suspect]
     Active Substance: RIVAROXABAN
     Indication: PRODUCT USED FOR UNKNOWN INDICATION
     Route: 048
  7. OMEPRAZOLE. [Concomitant]
     Active Substance: OMEPRAZOLE
     Route: 065
  8. MOVICOL [Concomitant]
     Active Substance: POLYETHYLENE GLYCOL 3350\POTASSIUM CHLORIDE\SODIUM BICARBONATE\SODIUM CHLORIDE
     Route: 065

REACTIONS (2)
  - Cerebral haemorrhage [Unknown]
  - Drug administration error [Unknown]

NARRATIVE: CASE EVENT DATE: 2016
